FAERS Safety Report 4338711-9 (Version None)
Quarter: 2004Q2

REPORT INFORMATION
  Report Type: 
  Country: None (occurrence: None)
  Receive Date: 20040409
  Receipt Date: 20040409
  Transmission Date: 20050107
  Serious: Yes (Other)
  Sender: FDA-Public Use
  Company Number: None

PATIENT
  Age: 52 Year
  Sex: Female
  Weight: 81.6475 kg

DRUGS (7)
  1. TWICE -A-DAY 12 HOUR NASAL SPRAY (MFGD. BY PROPHARMA) [Suspect]
     Indication: NASAL DECONGESTION THERAPY
     Dosage: NASAL SPRAY (12 SPRAYS)
     Route: 045
  2. CLARITIN [Concomitant]
  3. SINGULAIR [Suspect]
  4. ADVAIR DISKUS 250/50 [Suspect]
  5. PRILOSEC [Suspect]
  6. AFTELEN [Suspect]
  7. TYLENOL (CAPLET) [Suspect]

REACTIONS (1)
  - INFECTION [None]
